FAERS Safety Report 14485657 (Version 1)
Quarter: 2018Q1

REPORT INFORMATION
  Report Type: Spontaneous
  Country: TR (occurrence: TR)
  Receive Date: 20180205
  Receipt Date: 20180205
  Transmission Date: 20180509
  Serious: Yes (Hospitalization)
  Sender: FDA-Public Use
  Company Number: TR-ROCHE-2064861

PATIENT
  Age: 30 Month
  Sex: Female

DRUGS (1)
  1. CLONAZEPAM. [Suspect]
     Active Substance: CLONAZEPAM
     Indication: PRODUCT USED FOR UNKNOWN INDICATION
     Route: 048

REACTIONS (7)
  - Loss of consciousness [Recovered/Resolved]
  - Accidental exposure to product by child [Unknown]
  - Accidental overdose [Unknown]
  - Gait disturbance [Recovered/Resolved]
  - Fall [Unknown]
  - Electrocardiogram QT prolonged [Recovered/Resolved]
  - Coma [Recovered/Resolved]
